FAERS Safety Report 4967516-0 (Version None)
Quarter: 2006Q2

REPORT INFORMATION
  Report Type: 
  Country: None (occurrence: None)
  Receive Date: 20060407
  Receipt Date: 20060407
  Transmission Date: 20061013
  Serious: Yes (Death, Other)
  Sender: FDA-Public Use
  Company Number: None

PATIENT
  Age: 70 Year
  Sex: Male
  Weight: 94.8018 kg

DRUGS (1)
  1. XIGRIS [Suspect]
     Indication: SEPTIC SHOCK
     Dosage: 20 MG/NS 100 ML   Q12H OVER 96 HOURS   IV DRIP
     Route: 041
     Dates: start: 20060323, end: 20060323

REACTIONS (1)
  - DEATH [None]
